FAERS Safety Report 10186693 (Version 2)
Quarter: 2014Q2

REPORT INFORMATION
  Report Type: Report from Study
  Country: US (occurrence: US)
  Receive Date: 20140521
  Receipt Date: 20140630
  Transmission Date: 20141212
  Serious: Yes (Life-Threatening, Hospitalization, Other)
  Sender: FDA-Public Use
  Company Number: US-ONYX-2014-1100

PATIENT
  Age: 60 Year
  Sex: 0
  Weight: 54.5 kg

DRUGS (1)
  1. CARFILZOMIB [Suspect]
     Indication: AMYLOIDOSIS
     Route: 042
     Dates: start: 20140107, end: 20140513

REACTIONS (1)
  - Ventricular tachycardia [Recovered/Resolved]
